FAERS Safety Report 13608521 (Version 1)
Quarter: 2017Q2

REPORT INFORMATION
  Report Type: Report from Study
  Country: None (occurrence: CO)
  Receive Date: 20170602
  Receipt Date: 20170602
  Transmission Date: 20170830
  Serious: Yes (Death)
  Sender: FDA-Public Use
  Company Number: CO-ABBVIE-17P-036-1993180-00

PATIENT
  Age: 36 Year
  Sex: Male

DRUGS (1)
  1. ZEMPLAR [Suspect]
     Active Substance: PARICALCITOL
     Indication: HYPERPARATHYROIDISM SECONDARY
     Dosage: POST DIALYSIS
     Route: 042
     Dates: start: 20160725, end: 20170324

REACTIONS (5)
  - Cardio-respiratory arrest [Fatal]
  - Dyspnoea [Fatal]
  - Myocardial infarction [Fatal]
  - Malaise [Fatal]
  - Death [Fatal]

NARRATIVE: CASE EVENT DATE: 20170522
